FAERS Safety Report 8796164 (Version 1)
Quarter: 2012Q4

REPORT INFORMATION
  Report Type: 
  Country: DE (occurrence: DE)
  Receive Date: 20120919
  Receipt Date: 20120919
  Transmission Date: 20130627
  Serious: Yes (Life-Threatening, Hospitalization, Other)
  Sender: FDA-Public Use
  Company Number: DE-ELI_LILLY_AND_COMPANY-DE201209003850

PATIENT
  Sex: Male

DRUGS (13)
  1. HUMALOG LISPRO [Suspect]
     Indication: TYPE 2 DIABETES MELLITUS
     Dosage: UNK, prn
     Route: 058
  2. LANTUS [Concomitant]
     Dosage: UNK, unknown
  3. KREON [Concomitant]
     Dosage: UNK, unknown
  4. PANTOPRAZOL [Concomitant]
     Dosage: UNK, unknown
  5. GABAPENTIN [Concomitant]
     Dosage: UNK, unknown
  6. NIFEDIPINE [Concomitant]
     Dosage: UNK, unknown
  7. SIMVABETA [Concomitant]
     Dosage: UNK, unknown
  8. RAMIPRIL [Concomitant]
     Dosage: UNK, unknown
  9. BISOPROLOL [Concomitant]
     Dosage: UNK, unknown
  10. RANIBETA [Concomitant]
     Dosage: UNK, unknown
  11. TRAMAL [Concomitant]
     Dosage: UNK, unknown
  12. DIAZEPAM [Concomitant]
     Dosage: UNK, unknown
  13. ZOLPIDEM [Concomitant]
     Dosage: UNK, unknown

REACTIONS (1)
  - Renal failure [Recovered/Resolved]
